FAERS Safety Report 6809692-0 (Version None)
Quarter: 2010Q2

REPORT INFORMATION
  Report Type: 
  Country: None (occurrence: None)
  Receive Date: 20100630
  Receipt Date: 20100625
  Transmission Date: 20101027
  Serious: Yes (Death, Life-Threatening, Hospitalization, Other)
  Sender: FDA-Public Use
  Company Number: ES-CELGENEUS-144-21880-10032746

PATIENT
  Sex: Male

DRUGS (5)
  1. REVLIMID [Suspect]
     Route: 048
     Dates: start: 20100322, end: 20100326
  2. REVLIMID [Suspect]
     Route: 048
     Dates: start: 20090612
  3. DEXAMETHASONE [Suspect]
     Route: 048
     Dates: start: 20100322, end: 20100326
  4. DEXAMETHASONE [Suspect]
     Route: 048
     Dates: start: 20090612
  5. EPO [Concomitant]
     Indication: DRUG USE FOR UNKNOWN INDICATION
     Route: 065

REACTIONS (1)
  - ABDOMINAL SEPSIS [None]
